FAERS Safety Report 6328971-7 (Version None)
Quarter: 2009Q3

REPORT INFORMATION
  Report Type: 
  Country: None (occurrence: None)
  Receive Date: 20090824
  Receipt Date: 20090824
  Transmission Date: 20100115
  Serious: Yes (Other)
  Sender: FDA-Public Use
  Company Number: None

PATIENT
  Age: 24 Year
  Sex: Female
  Weight: 111.1313 kg

DRUGS (3)
  1. ABILIFY [Suspect]
     Indication: BIPOLAR DISORDER
     Dosage: 30 MG 1XDAY PO AFEW MONTHS
     Route: 048
  2. ABILIFY [Suspect]
     Indication: MAJOR DEPRESSION
     Dosage: 30 MG 1XDAY PO AFEW MONTHS
     Route: 048
  3. ABILIFY [Suspect]
     Indication: SCHIZOPHRENIA
     Dosage: 30 MG 1XDAY PO AFEW MONTHS
     Route: 048

REACTIONS (2)
  - VISION BLURRED [None]
  - VISUAL ACUITY REDUCED [None]
